FAERS Safety Report 6983721-6 (Version None)
Quarter: 2010Q3

REPORT INFORMATION
  Report Type: 
  Country: None (occurrence: None)
  Receive Date: 20100914
  Receipt Date: 20020314
  Transmission Date: 20110219
  Serious: Yes (Hospitalization)
  Sender: FDA-Public Use
  Company Number: US-WYE-H07129208

PATIENT
  Age: 47 Year
  Sex: Female

DRUGS (9)
  1. IBUPROFEN [Suspect]
     Route: 048
     Dates: start: 20000909, end: 20000909
  2. LAMICTAL [Concomitant]
  3. CENTRUM [Concomitant]
  4. COLACE [Concomitant]
  5. DITROPAN [Concomitant]
  6. PROMETRIUM [Concomitant]
  7. ZONEGRAN [Suspect]
     Indication: COMPLEX PARTIAL SEIZURES
     Route: 048
     Dates: start: 20000101
  8. ZONEGRAN [Suspect]
     Route: 048
     Dates: start: 20000909, end: 20000909
  9. PRIMIDONE [Concomitant]

REACTIONS (7)
  - BLOOD CREATININE INCREASED [None]
  - GASTRITIS [None]
  - INTENTIONAL OVERDOSE [None]
  - NAUSEA [None]
  - SOMNOLENCE [None]
  - SUICIDE ATTEMPT [None]
  - URINARY TRACT INFECTION [None]
